FAERS Safety Report 8321493-3 (Version None)
Quarter: 2012Q2

REPORT INFORMATION
  Report Type: 
  Country: None (occurrence: None)
  Receive Date: 20120430
  Receipt Date: 20120430
  Transmission Date: 20120825
  Serious: No
  Sender: FDA-Public Use
  Company Number: None

PATIENT
  Age: 81 Year
  Sex: Male
  Weight: 93.5 kg

DRUGS (10)
  1. CARBIDOPA + LEVODOPA [Concomitant]
  2. HURRICAINE SPRAY [Suspect]
     Indication: ECHOCARDIOGRAM
     Dates: start: 20120203, end: 20120203
  3. LIDOCAINE HCL VISCOUS [Concomitant]
  4. AZILECT [Concomitant]
     Route: 048
  5. VANCOMYCIN [Concomitant]
     Route: 042
  6. NAFCILLIN [Concomitant]
  7. CHLORHEXIDINE GLUCONATE [Concomitant]
  8. PANTOPRAZOLE [Concomitant]
     Route: 048
  9. CITALOPRAM [Concomitant]
     Route: 048
  10. ENTACAPONE [Concomitant]
     Route: 048

REACTIONS (1)
  - METHAEMOGLOBINAEMIA [None]
